FAERS Safety Report 7083554-9 (Version None)
Quarter: 2010Q4

REPORT INFORMATION
  Report Type: 
  Country: None (occurrence: None)
  Receive Date: 20101104
  Receipt Date: 20101026
  Transmission Date: 20110411
  Serious: Yes (Other)
  Sender: FDA-Public Use
  Company Number: US-ROCHE-732134

PATIENT
  Age: 71 Year
  Sex: Female

DRUGS (1)
  1. AVASTIN [Suspect]
     Route: 031
     Dates: start: 20100806

REACTIONS (9)
  - ASTHENIA [None]
  - BLINDNESS [None]
  - DECREASED APPETITE [None]
  - DEPRESSION [None]
  - DIZZINESS [None]
  - EYE HAEMORRHAGE [None]
  - FATIGUE [None]
  - NAUSEA [None]
  - SLEEP DISORDER [None]
